FAERS Safety Report 18447457 (Version 2)
Quarter: 2020Q4

REPORT INFORMATION
  Report Type: Spontaneous
  Country: US (occurrence: US)
  Receive Date: 20201101
  Receipt Date: 20201120
  Transmission Date: 20210114
  Serious: No
  Sender: FDA-Public Use
  Company Number: US-B.I. PHARMACEUTICALS,INC./RIDGEFIELD-2020-BI-058741

PATIENT
  Age: 71 Year
  Sex: Male

DRUGS (3)
  1. OFEV [Suspect]
     Active Substance: NINTEDANIB
     Dosage: 150MG ONCE A DAY
     Dates: start: 202007, end: 20201029
  2. OFEV [Suspect]
     Active Substance: NINTEDANIB
     Indication: IDIOPATHIC PULMONARY FIBROSIS
     Dosage: 150MG TWICE A DAY
     Dates: start: 2018, end: 202007
  3. OFEV [Suspect]
     Active Substance: NINTEDANIB
     Dosage: 100MG TWICE A DAY
     Dates: start: 20201030

REACTIONS (3)
  - Abdominal pain upper [Not Recovered/Not Resolved]
  - Diarrhoea [Not Recovered/Not Resolved]
  - Bronchiectasis [Not Recovered/Not Resolved]

NARRATIVE: CASE EVENT DATE: 2019
